FAERS Safety Report 8083278-5 (Version None)
Quarter: 2012Q1

REPORT INFORMATION
  Report Type: 
  Country: None (occurrence: None)
  Receive Date: 20120127
  Receipt Date: 20110304
  Transmission Date: 20120608
  Serious: No
  Sender: FDA-Public Use
  Company Number: US-ABBOTT-11P-163-0709395-00

PATIENT
  Age: 62 Year
  Sex: Female

DRUGS (23)
  1. XOPENEX [Concomitant]
     Dosage: 1.25 EVERY 4 HOURS AS NEEDED
  2. MIRALAX [Concomitant]
     Indication: PRODUCT USED FOR UNKNOWN INDICATION
     Dosage: OTC, 1 CAP FULL DAILY
  3. OMEGA 3-6-9 OTC [Concomitant]
     Indication: SUPPLEMENTATION THERAPY
  4. CYMBALTA [Concomitant]
     Indication: PRODUCT USED FOR UNKNOWN INDICATION
  5. RHINOCORT [Concomitant]
     Indication: PRODUCT USED FOR UNKNOWN INDICATION
     Dosage: 2 SPRAYS IN EACH NOSTRIL DAILY
     Route: 045
  6. TRAMADOL HCL [Concomitant]
     Indication: PRODUCT USED FOR UNKNOWN INDICATION
     Dosage: 1-2 IN THE MORNING AND 1-2 IN PM
  7. PRAVASTATIN [Concomitant]
     Indication: PRODUCT USED FOR UNKNOWN INDICATION
     Dosage: 1 IN THE MORNING
  8. TOPAMAX [Concomitant]
     Indication: PRODUCT USED FOR UNKNOWN INDICATION
     Dosage: 1 IN THE MORNING AND 2 AT BEDTIME
  9. HUMIRA [Suspect]
     Indication: RHEUMATOID ARTHRITIS
     Dates: start: 20030101, end: 20110121
  10. CARTIA XT [Concomitant]
     Indication: CARDIAC DISORDER
     Dosage: 1 IN THE MORNING AND 1 AT NIGHT
  11. SYMBICORT [Concomitant]
     Indication: PRODUCT USED FOR UNKNOWN INDICATION
     Dosage: 160/4.5; 2 PUFFS TWICE A DAY
  12. NABUMETONE [Concomitant]
     Indication: PRODUCT USED FOR UNKNOWN INDICATION
     Dosage: 2 IN THE PM
  13. PREVACID SOLTAB [Concomitant]
     Indication: PRODUCT USED FOR UNKNOWN INDICATION
     Dosage: 1 IN THE MORNING
  14. XOPENEX [Concomitant]
     Indication: PRODUCT USED FOR UNKNOWN INDICATION
     Dosage: EVERY 4 HOURS AS NEEDED
  15. ACIPHEX [Concomitant]
     Indication: GASTROOESOPHAGEAL REFLUX DISEASE
     Dosage: 1 IN PM
  16. COQ10 [Concomitant]
     Indication: PRODUCT USED FOR UNKNOWN INDICATION
     Dosage: OTC, 1 AFTER BREAKFAST DAILY
  17. DULCOLAX [Concomitant]
     Indication: CONSTIPATION
     Dosage: OTC 3-4 AS NEEDED
  18. LISINOPRIL [Concomitant]
     Indication: PRODUCT USED FOR UNKNOWN INDICATION
     Dosage: 1 IN THE MORNING AND 1 AT NIGHT
  19. SYNTHROID [Concomitant]
     Indication: PRODUCT USED FOR UNKNOWN INDICATION
  20. METHOTREXATE [Concomitant]
     Indication: PRODUCT USED FOR UNKNOWN INDICATION
  21. XOPENEX [Concomitant]
     Dosage: EVERY 4 HOURS AS NEEDED
  22. CALCIUM/D OTC [Concomitant]
     Indication: MINERAL SUPPLEMENTATION
  23. FOLIC ACID [Concomitant]
     Indication: PRODUCT USED FOR UNKNOWN INDICATION
     Dosage: 1 IN THE MORNING

REACTIONS (10)
  - MALAISE [None]
  - VIRAL INFECTION [None]
  - LARYNGITIS [None]
  - EAR PAIN [None]
  - SINUS CONGESTION [None]
  - COUGH [None]
  - CANDIDIASIS [None]
  - NASAL MUCOSAL DISORDER [None]
  - RHEUMATOID ARTHRITIS [None]
  - EAR DISORDER [None]
